FAERS Safety Report 5286418-6 (Version None)
Quarter: 2007Q2

REPORT INFORMATION
  Report Type: 
  Country: None (occurrence: None)
  Receive Date: 20070404
  Receipt Date: 20070327
  Transmission Date: 20071010
  Serious: Yes (Other)
  Sender: FDA-Public Use
  Company Number: US-ROCHE-483026

PATIENT
  Age: 38 Year
  Sex: Male

DRUGS (2)
  1. VESANOID [Suspect]
     Dosage: THE PATIENT WAS SCHEDULED TO TAKE VESANOID FOR A TOTAL OF 1 YEAR.  HE WAS IN HIS 3RD OR 4TH ROUND A+
     Route: 065
     Dates: start: 20060915
  2. VESANOID [Suspect]
     Dosage: VESANOID WAS DECREASED TO '2 CAP BID X 15 DAYS Q 3 MONTHS X 1 YEAR.'
     Route: 065

REACTIONS (2)
  - CONGENITAL ENDOCRINE ANOMALY [None]
  - PRIMARY HYPOTHYROIDISM [None]
